FAERS Safety Report 8847183 (Version 1)
Quarter: 2012Q4

REPORT INFORMATION
  Report Type: 
  Country: US (occurrence: US)
  Receive Date: 20121018
  Receipt Date: 20121018
  Transmission Date: 20130627
  Serious: No
  Sender: FDA-Public Use
  Company Number: US-TEVA-364973USA

PATIENT
  Sex: Male
  Weight: 97.61 kg

DRUGS (1)
  1. QNASL [Suspect]
     Route: 045

REACTIONS (1)
  - Nasal discomfort [Recovered/Resolved]
